FAERS Safety Report 16164414 (Version 1)
Quarter: 2019Q2

REPORT INFORMATION
  Report Type: Spontaneous
  Country: CN (occurrence: CN)
  Receive Date: 20190405
  Receipt Date: 20190405
  Transmission Date: 20190711
  Serious: Yes (Death, Other)
  Sender: FDA-Public Use
  Company Number: CN-ROCHE-2296921

PATIENT
  Age: 64 Year
  Sex: Female
  Weight: 58 kg

DRUGS (11)
  1. XELODA [Suspect]
     Active Substance: CAPECITABINE
     Dosage: DAY1 TO DAY14
     Route: 048
     Dates: start: 20180126, end: 20181112
  2. AVASTIN [Suspect]
     Active Substance: BEVACIZUMAB
     Indication: COLON CANCER
     Dosage: 3 CYCLES
     Route: 065
     Dates: start: 20171012, end: 2017
  3. OXALIPLATIN. [Suspect]
     Active Substance: OXALIPLATIN
     Indication: COLON CANCER
     Dosage: 8 CYCLES
     Route: 041
     Dates: start: 2016
  4. IRINOTECAN [Concomitant]
     Active Substance: IRINOTECAN
     Indication: COLON CANCER
     Dosage: 3 CYCLES
     Route: 065
     Dates: start: 20171012, end: 2017
  5. CALCIUM FOLINATE [Concomitant]
     Active Substance: LEUCOVORIN CALCIUM
     Indication: COLON CANCER
     Dosage: 3 CYCLES
     Route: 065
     Dates: start: 20171012, end: 2017
  6. OXALIPLATIN. [Suspect]
     Active Substance: OXALIPLATIN
     Dosage: DAY1
     Route: 041
     Dates: start: 20180103
  7. XELODA [Suspect]
     Active Substance: CAPECITABINE
     Route: 048
     Dates: start: 20171212
  8. OXALIPLATIN. [Suspect]
     Active Substance: OXALIPLATIN
     Dosage: THE FIRST PERITONEAL PERFUSION TREATMENT
     Route: 041
     Dates: start: 20171212
  9. XELODA [Suspect]
     Active Substance: CAPECITABINE
     Indication: COLON CANCER
     Dosage: 8 CYCLES
     Route: 048
     Dates: start: 2016
  10. XELODA [Suspect]
     Active Substance: CAPECITABINE
     Dosage: DAY 1 TO DAY 14
     Route: 048
     Dates: start: 20180103
  11. 5-FLUOROURACIL [Concomitant]
     Active Substance: FLUOROURACIL
     Indication: COLON CANCER
     Dosage: 3 CYCLES
     Route: 065
     Dates: start: 20171012, end: 2017

REACTIONS (7)
  - White blood cell count decreased [Unknown]
  - Nausea [Unknown]
  - Death [Fatal]
  - Drug ineffective [Fatal]
  - Pleural effusion [Recovering/Resolving]
  - Vomiting [Unknown]
  - Anaphylactic shock [Unknown]

NARRATIVE: CASE EVENT DATE: 20171012
